FAERS Safety Report 5518904-5 (Version None)
Quarter: 2007Q4

REPORT INFORMATION
  Report Type: 
  Country: None (occurrence: None)
  Receive Date: 20071114
  Receipt Date: 20071030
  Transmission Date: 20080405
  Serious: No
  Sender: FDA-Public Use
  Company Number: CLOF-10737

PATIENT
  Age: 64 Year
  Sex: Male
  Weight: 100 kg

DRUGS (23)
  1. CLOFARABINE [Suspect]
     Indication: ACUTE MYELOID LEUKAEMIA
     Dosage: 66 MG IV
     Route: 042
  2. TYLENOL [Concomitant]
  3. ATIVAN [Concomitant]
  4. LASIX [Concomitant]
  5. PANTOPRAZOLE SODIUM [Concomitant]
  6. ATENOLOL [Concomitant]
  7. AMLODIPINE [Concomitant]
  8. VALSARTAN [Concomitant]
  9. SIMVASTATIN [Concomitant]
  10. INSULIN ASPART        CORRECTION DOSE INJECTION [Concomitant]
  11. ACETAMINOPHEN [Concomitant]
  12. RAMIPRIL [Concomitant]
  13. VANCOMYCIN [Concomitant]
  14. CEFEPIME [Concomitant]
  15. AMIKACIN [Concomitant]
  16. NPH ILETIN II [Concomitant]
  17. NYSTATIN [Concomitant]
  18. HYDROCODONE BITARTRATE AND ACETAMINOPHEN [Concomitant]
  19. AMPHOTERICIN B [Concomitant]
  20. GUAIFENESIN [Concomitant]
  21. CEFAZOLIN SODIUM IN DEXTROSE 5% [Concomitant]
  22. SODIUM CHLORIDE [Concomitant]
  23. POTASSIUM CHLORIDE [Concomitant]

REACTIONS (9)
  - ANXIETY [None]
  - COLD SWEAT [None]
  - CONFUSIONAL STATE [None]
  - DYSPNOEA [None]
  - FLUID OVERLOAD [None]
  - HYPERHIDROSIS [None]
  - OXYGEN SATURATION DECREASED [None]
  - PALLOR [None]
  - RESTLESSNESS [None]
